FAERS Safety Report 21294584 (Version 2)
Quarter: 2022Q3

REPORT INFORMATION
  Report Type: Report from Study
  Country: EG (occurrence: EG)
  Receive Date: 20220905
  Receipt Date: 20220908
  Transmission Date: 20221027
  Serious: Yes (Other)
  Sender: FDA-Public Use
  Company Number: EG-NOVARTISPH-NVSC2022EG198906

PATIENT
  Age: 11 Year
  Sex: Female

DRUGS (4)
  1. OMNITROPE [Suspect]
     Active Substance: SOMATROPIN
     Indication: Growth hormone deficiency
     Dosage: 1.1 MG, QD
     Route: 058
     Dates: start: 20220823
  2. OMNITROPE [Suspect]
     Active Substance: SOMATROPIN
     Indication: Short stature
  3. ZINC [Concomitant]
     Active Substance: ZINC
     Indication: Supplementation therapy
     Dosage: 1 DOSAGE FORM, QD (1 TABLE SPOONFUL)
     Route: 048
     Dates: start: 20220823
  4. HI CAL [Concomitant]
     Indication: Supplementation therapy
     Dosage: 1 DOSAGE FORM, QD (1 TABLE SPOONFUL)
     Route: 048
     Dates: start: 20220823

REACTIONS (13)
  - Gait inability [Not Recovered/Not Resolved]
  - Arthralgia [Not Recovered/Not Resolved]
  - Joint swelling [Not Recovered/Not Resolved]
  - Injection site haemorrhage [Recovered/Resolved]
  - Wrong technique in product usage process [Recovered/Resolved]
  - Pain in extremity [Not Recovered/Not Resolved]
  - Joint noise [Not Recovered/Not Resolved]
  - Injection site extravasation [Recovered/Resolved]
  - Underdose [Recovered/Resolved]
  - Incorrect dose administered by device [Recovered/Resolved]
  - Product preparation error [Not Recovered/Not Resolved]
  - Poor quality device used [Recovered/Resolved]
  - Wrong device used [Not Recovered/Not Resolved]

NARRATIVE: CASE EVENT DATE: 20220823
